FAERS Safety Report 10052550 (Version 1)
Quarter: 2014Q2

REPORT INFORMATION
  Report Type: Spontaneous
  Country: US (occurrence: None)
  Receive Date: 20140402
  Receipt Date: 20140402
  Transmission Date: 20141212
  Serious: Yes (Hospitalization)
  Sender: FDA-Public Use
  Company Number: None

PATIENT
  Age: 28 Year
  Sex: Female
  Weight: 62.6 kg

DRUGS (4)
  1. MIFEPRISTONE [Suspect]
     Indication: ABORTION INDUCED
     Dosage: 3 PILLS ORAL
     Route: 048
     Dates: start: 20140227
  2. MISOPROSTOL [Suspect]
     Indication: DRUG THERAPY
     Dosage: 2 PILLS ORAL
     Route: 048
     Dates: start: 20140301
  3. PROMETHAZINE [Concomitant]
  4. TYLENOL WITH CODEINE [Concomitant]

REACTIONS (4)
  - Uterine dilation and curettage [None]
  - Haemorrhage [None]
  - Retained products of conception [None]
  - Abortion induced incomplete [None]
